FAERS Safety Report 6773645-1 (Version None)
Quarter: 2010Q2

REPORT INFORMATION
  Report Type: 
  Country: None (occurrence: None)
  Receive Date: 20100614
  Receipt Date: 20100531
  Transmission Date: 20101027
  Serious: Yes (Hospitalization)
  Sender: FDA-Public Use
  Company Number: GB-1182081

PATIENT
  Age: 46 Year
  Sex: Male

DRUGS (1)
  1. TROPICAMIDE [Suspect]
     Dosage: 1 GTT OPHTHALMIC
     Route: 047
     Dates: start: 20100430, end: 20100430

REACTIONS (6)
  - ANAPHYLACTIC SHOCK [None]
  - FEELING ABNORMAL [None]
  - LOSS OF CONSCIOUSNESS [None]
  - NAUSEA [None]
  - PALLOR [None]
  - PSYCHOSOMATIC DISEASE [None]
